FAERS Safety Report 8553689 (Version 2)
Quarter: 2013Q4

REPORT INFORMATION
  Report Type: Spontaneous
  Country: CN (occurrence: CN)
  Receive Date: 20120509
  Receipt Date: 20131104
  Transmission Date: 20140711
  Serious: Yes (Other)
  Sender: FDA-Public Use
  Company Number: PHHY2012CN038531

PATIENT
  Age: 60 Year
  Sex: Female

DRUGS (4)
  1. ACLASTA [Suspect]
     Indication: OSTEOPOROSIS
     Dosage: 5 MG / 100ML PER YEAR
     Route: 042
     Dates: start: 20120503, end: 20120503
  2. ACLASTA [Suspect]
     Indication: ARRHYTHMIA
  3. CALCIUM [Concomitant]
     Route: 048
  4. VITAMIN D3 [Concomitant]

REACTIONS (9)
  - Laryngeal pain [Recovering/Resolving]
  - Speech disorder [Recovered/Resolved]
  - Hypophagia [Unknown]
  - Musculoskeletal chest pain [Recovering/Resolving]
  - Influenza like illness [Recovering/Resolving]
  - Myalgia [Recovering/Resolving]
  - Pyrexia [Recovering/Resolving]
  - Oropharyngeal pain [Recovered/Resolved]
  - Decreased appetite [Recovered/Resolved]
